FAERS Safety Report 25518900 (Version 1)
Quarter: 2025Q3

REPORT INFORMATION
  Report Type: Report from Study
  Country: CA (occurrence: CA)
  Receive Date: 20250704
  Receipt Date: 20250704
  Transmission Date: 20251021
  Serious: Yes (Hospitalization)
  Sender: TAKEDA
  Company Number: CA-TAKEDA-2025TUS058559

PATIENT
  Sex: Male

DRUGS (19)
  1. VEDOLIZUMAB [Suspect]
     Active Substance: VEDOLIZUMAB
     Indication: Colitis ulcerative
  2. VEDOLIZUMAB [Suspect]
     Active Substance: VEDOLIZUMAB
     Dosage: 300 MILLIGRAM, Q4WEEKS
     Dates: start: 20241108
  3. MESALAMINE [Concomitant]
     Active Substance: MESALAMINE
  4. SULFATRIM [Concomitant]
     Active Substance: SULFAMETHOXAZOLE\TRIMETHOPRIM
  5. BISOPROLOL [Concomitant]
     Active Substance: BISOPROLOL
  6. CANDESARTAN [Concomitant]
     Active Substance: CANDESARTAN
  7. METFORMIN [Concomitant]
     Active Substance: METFORMIN HYDROCHLORIDE
  8. DEXILANT [Concomitant]
     Active Substance: DEXLANSOPRAZOLE
  9. ASPIRIN [Concomitant]
     Active Substance: ASPIRIN
  10. Calcite [Concomitant]
  11. SYNTHROID [Concomitant]
     Active Substance: LEVOTHYROXINE SODIUM
  12. ATORVASTATIN [Concomitant]
     Active Substance: ATORVASTATIN
  13. VITAMIN B12 [Concomitant]
     Active Substance: CYANOCOBALAMIN
  14. BASAGLAR [Concomitant]
     Active Substance: INSULIN GLARGINE
  15. OZEMPIC [Concomitant]
     Active Substance: SEMAGLUTIDE
  16. WARFARIN [Concomitant]
     Active Substance: WARFARIN
  17. PREDNISONE [Concomitant]
     Active Substance: PREDNISONE
  18. Urisec [Concomitant]
  19. DOCUSATE SODIUM [Concomitant]
     Active Substance: DOCUSATE SODIUM

REACTIONS (3)
  - Malaise [Unknown]
  - Dizziness [Unknown]
  - Magnesium deficiency [Unknown]
